FAERS Safety Report 9874659 (Version 3)
Quarter: 2020Q3

REPORT INFORMATION
  Report Type: Report from Study
  Country: TH (occurrence: TH)
  Receive Date: 20140206
  Receipt Date: 20161125
  Transmission Date: 20201104
  Serious: Yes (Hospitalization)
  Sender: FDA-Public Use
  Company Number: PHHY2014TH013984

PATIENT
  Age: 50 Year
  Sex: Female

DRUGS (12)
  1. DEXAMETHASONE. [Concomitant]
     Active Substance: DEXAMETHASONE
     Indication: PREMEDICATION
     Dosage: 10 MG, UNK
     Route: 042
     Dates: start: 20131007
  2. ALBUMIN HUMAN [Concomitant]
     Active Substance: ALBUMIN HUMAN
     Dosage: 50 ML, UNK
     Route: 042
     Dates: start: 20131022
  3. METOCLOPRAMIDE. [Concomitant]
     Active Substance: METOCLOPRAMIDE
     Indication: GASTRIC CANCER
     Dosage: 10 MG, UNK
     Route: 048
     Dates: start: 20131007
  4. 5?FLUOROURACIL [Suspect]
     Active Substance: FLUOROURACIL
     Indication: GASTRIC CANCER
     Dosage: 604 MG, 1 IN 2 WEEKS
     Route: 042
     Dates: start: 20131007
  5. 5?FLUOROURACIL [Suspect]
     Active Substance: FLUOROURACIL
     Dosage: 3624 MG, UNK
     Route: 042
     Dates: start: 20131120
  6. POTASSIUM CHLORIDE. [Concomitant]
     Active Substance: POTASSIUM CHLORIDE
     Indication: HYPOKALAEMIA
     Dosage: 30 ML, UNK
     Route: 048
     Dates: start: 20131104, end: 20131105
  7. ONDANSETRON [Concomitant]
     Active Substance: ONDANSETRON
     Indication: GASTRIC CANCER
     Dosage: 8 MG, UNK
     Route: 042
     Dates: start: 20131007
  8. ONARTUZUMAB. [Suspect]
     Active Substance: ONARTUZUMAB
     Indication: GASTRIC CANCER
     Dosage: 10 MG/KG,1 IN 2 WEEKS
     Route: 042
     Dates: start: 20131007
  9. OXALIPLATIN. [Suspect]
     Active Substance: OXALIPLATIN
     Indication: GASTROOESOPHAGEAL CANCER
     Dosage: 128 MG, 1 IN 2 WEEKS
     Route: 042
     Dates: start: 20131007
  10. LEUCOVORIN. [Suspect]
     Active Substance: LEUCOVORIN
     Indication: GASTRIC CANCER
     Dosage: 604 MG, 1 IN 2 WEEKS
     Route: 042
     Dates: start: 20131007
  11. LOPERAMIDE [Concomitant]
     Active Substance: LOPERAMIDE
     Indication: GASTRIC CANCER
     Dosage: 2 MG, UNK
     Route: 048
     Dates: start: 20131007
  12. DIPHENHYDRAMINE. [Concomitant]
     Active Substance: DIPHENHYDRAMINE
     Indication: PREMEDICATION
     Dosage: 50 MG, UNK
     Route: 048
     Dates: start: 20131007

REACTIONS (2)
  - Oedema peripheral [Recovering/Resolving]
  - Deep vein thrombosis [Recovering/Resolving]

NARRATIVE: CASE EVENT DATE: 20131122
